FAERS Safety Report 16059002 (Version 1)
Quarter: 2019Q1

REPORT INFORMATION
  Report Type: Spontaneous
  Country: CA (occurrence: CA)
  Receive Date: 20190311
  Receipt Date: 20190311
  Transmission Date: 20190418
  Serious: Yes (Death, Hospitalization)
  Sender: FDA-Public Use
  Company Number: CA-IMPAX LABORATORIES, LLC-2019-IPXL-00625

PATIENT

DRUGS (2)
  1. URSODIOL. [Suspect]
     Active Substance: URSODIOL
     Indication: CARDIAC AMYLOIDOSIS
     Dosage: 250 MILLIGRAM, TID
     Route: 065
  2. DOXYCYCLINE HYCLATE DELAYED RELEASE [Suspect]
     Active Substance: DOXYCYCLINE HYCLATE
     Indication: CARDIAC AMYLOIDOSIS
     Dosage: 100 MILLIGRAM, BID
     Route: 065

REACTIONS (2)
  - Cardiac failure chronic [Fatal]
  - Off label use [Unknown]
